FAERS Safety Report 7618891-X (Version None)
Quarter: 2011Q3

REPORT INFORMATION
  Report Type: 
  Country: None (occurrence: None)
  Receive Date: 20110718
  Receipt Date: 20110708
  Transmission Date: 20111222
  Serious: Yes (Hospitalization)
  Sender: FDA-Public Use
  Company Number: US-BAXTER-2011BH021392

PATIENT
  Age: 55 Year
  Sex: Male

DRUGS (2)
  1. COUMADIN [Concomitant]
     Indication: CARDIAC DISORDER
  2. DIANEAL [Suspect]
     Indication: PERITONEAL DIALYSIS
     Route: 033
     Dates: end: 20110701

REACTIONS (2)
  - FURUNCLE [None]
  - CATHETER SITE INFECTION [None]
